FAERS Safety Report 24376498 (Version 1)
Quarter: 2024Q3

REPORT INFORMATION
  Report Type: Spontaneous
  Country: FR (occurrence: FR)
  Receive Date: 20240930
  Receipt Date: 20240930
  Transmission Date: 20241017
  Serious: Yes (Hospitalization)
  Sender: MYLAN
  Company Number: None

PATIENT
  Age: 58 Year
  Sex: Male

DRUGS (7)
  1. SERTRALINE [Suspect]
     Active Substance: SERTRALINE HYDROCHLORIDE
     Indication: Psychotic disorder
     Dosage: 50 MILLIGRAM, BID (50-0-50 MG)
     Route: 048
     Dates: start: 2021, end: 20240821
  2. SERTRALINE [Suspect]
     Active Substance: SERTRALINE HYDROCHLORIDE
     Dosage: 50 MILLIGRAM, QD (50-0-0 MG)
     Route: 048
     Dates: start: 20240822
  3. VALPROATE SODIUM [Suspect]
     Active Substance: VALPROATE SODIUM
     Indication: Psychotic disorder
     Dosage: 750 MILLIGRAM, QD (250-0-500 MG)
     Route: 048
     Dates: start: 2021, end: 20240821
  4. VALPROATE SODIUM [Suspect]
     Active Substance: VALPROATE SODIUM
     Dosage: 500 MILLIGRAM, QD (0-0-500 MG)
     Route: 048
     Dates: start: 20240822
  5. AMISULPRIDE [Suspect]
     Active Substance: AMISULPRIDE
     Indication: Psychotic disorder
     Dosage: 600 MILLIGRAM, QD (200-0-400 MG)
     Route: 048
     Dates: start: 2021, end: 20240621
  6. AMISULPRIDE [Suspect]
     Active Substance: AMISULPRIDE
     Dosage: 400 MILLIGRAM, BID (400-0-400 MG)
     Route: 048
     Dates: start: 20240622, end: 20240821
  7. AMISULPRIDE [Suspect]
     Active Substance: AMISULPRIDE
     Dosage: 200 MILLIGRAM, BID (200-0-200 MG)
     Route: 048
     Dates: start: 20240822

REACTIONS (2)
  - Tardive dyskinesia [Recovering/Resolving]
  - Extrapyramidal disorder [Recovering/Resolving]
